FAERS Safety Report 8306770-4 (Version None)
Quarter: 2012Q2

REPORT INFORMATION
  Report Type: 
  Country: None (occurrence: None)
  Receive Date: 20120424
  Receipt Date: 20120418
  Transmission Date: 20120825
  Serious: No
  Sender: FDA-Public Use
  Company Number: US-PFIZER INC-2012049428

PATIENT
  Sex: Female

DRUGS (4)
  1. EFFEXOR XR [Concomitant]
     Indication: SOMNOLENCE
     Dosage: 75 MG, UNK
  2. NORGESTREL AND ETHINYL ESTRADIOL [Suspect]
     Indication: MENSTRUAL CYCLE MANAGEMENT
  3. NORGESTREL AND ETHINYL ESTRADIOL [Suspect]
     Indication: OFF LABEL USE
     Dosage: 0.3 - 30MG DAILY
     Route: 048
     Dates: start: 20090101, end: 20120204
  4. MELATONIN [Concomitant]
     Indication: SLEEP DISORDER
     Dosage: 5 MG, UNK

REACTIONS (3)
  - MENORRHAGIA [None]
  - METRORRHAGIA [None]
  - PRODUCT QUALITY ISSUE [None]
